FAERS Safety Report 7238223-9 (Version None)
Quarter: 2011Q1

REPORT INFORMATION
  Report Type: 
  Country: None (occurrence: None)
  Receive Date: 20110121
  Receipt Date: 20110117
  Transmission Date: 20110831
  Serious: No
  Sender: FDA-Public Use
  Company Number: US-PFIZER INC-2011012918

PATIENT
  Sex: Male

DRUGS (1)
  1. ADVIL CONGESTION RELIEF [Suspect]
     Indication: SINUS CONGESTION
     Dosage: UNK
     Dates: start: 20110117

REACTIONS (1)
  - DRUG INEFFECTIVE [None]
